APPROVED DRUG PRODUCT: TROPHAMINE 10%
Active Ingredient: AMINO ACIDS
Strength: 10% (10GM/100ML)
Dosage Form/Route: INJECTABLE;INJECTION
Application: N019018 | Product #003
Applicant: B BRAUN MEDICAL INC
Approved: Sep 7, 1988 | RLD: Yes | RS: Yes | Type: RX